FAERS Safety Report 16349393 (Version 1)
Quarter: 2019Q2

REPORT INFORMATION
  Report Type: Spontaneous
  Country: US (occurrence: US)
  Receive Date: 20190418
  Receipt Date: 20190418
  Transmission Date: 20190711
  Serious: No
  Sender: FDA-Public Use
  Company Number: None

PATIENT
  Age: 30 Year
  Sex: Female

DRUGS (1)
  1. CLINDAMYCIN PHOSPHATE 900MG/0.6ML FRESINIUS KABI USA [Suspect]
     Active Substance: CLINDAMYCIN PHOSPHATE
     Indication: INFECTION
     Dosage: ?          OTHER FREQUENCY:Q8H;?
     Route: 042
     Dates: start: 20190328

REACTIONS (3)
  - Urticaria [None]
  - Rash pruritic [None]
  - Therapy cessation [None]

NARRATIVE: CASE EVENT DATE: 20190404
